FAERS Safety Report 21837332 (Version 2)
Quarter: 2023Q1

REPORT INFORMATION
  Report Type: Spontaneous
  Country: US (occurrence: US)
  Receive Date: 20230109
  Receipt Date: 20230110
  Transmission Date: 20230418
  Serious: No
  Sender: FDA-Public Use
  Company Number: US-BRISTOL-MYERS SQUIBB COMPANY-2023-002696

PATIENT
  Age: 62 Year
  Sex: Male

DRUGS (3)
  1. ZEPOSIA [Suspect]
     Active Substance: OZANIMOD HYDROCHLORIDE
     Indication: Colitis ulcerative
     Dosage: FREQUENCY: 1 CAPSULE BY MOUTH EVERY DAY
     Route: 048
     Dates: start: 20220815
  2. PROBIOTIC [BIFIDOBACTERIUM INFANTIS;LACTOBACILLUS ACIDOPHILUS] [Concomitant]
     Indication: Product used for unknown indication
  3. APRISO [Concomitant]
     Active Substance: MESALAMINE
     Indication: Product used for unknown indication
     Dosage: APRISO CAP 0.375 GM.

REACTIONS (2)
  - Diarrhoea [Unknown]
  - Impaired quality of life [Unknown]

NARRATIVE: CASE EVENT DATE: 20221201
